FAERS Safety Report 8174285-2 (Version None)
Quarter: 2012Q1

REPORT INFORMATION
  Report Type: 
  Country: None (occurrence: None)
  Receive Date: 20120229
  Receipt Date: 20120217
  Transmission Date: 20120608
  Serious: Yes (Hospitalization, Other)
  Sender: FDA-Public Use
  Company Number: FR-CELGENEUS-056-21880-12022137

PATIENT
  Sex: Male

DRUGS (4)
  1. DEXAMETHASONE [Concomitant]
     Route: 048
     Dates: start: 20110915
  2. ANAGRELIDE HYDROCHLORIDE [Concomitant]
     Dosage: 1 MILLIGRAM
     Route: 048
     Dates: start: 20111013
  3. REVLIMID [Suspect]
     Indication: MYELOFIBROSIS
     Dosage: 15 MILLIGRAM
     Route: 048
     Dates: start: 20110915, end: 20111230
  4. ASPIRIN [Concomitant]
     Indication: MYELOFIBROSIS
     Dosage: 75
     Route: 065

REACTIONS (2)
  - ARTERIAL THROMBOSIS LIMB [None]
  - EXTREMITY NECROSIS [None]
